FAERS Safety Report 25077671 (Version 1)
Quarter: 2025Q1

REPORT INFORMATION
  Report Type: Spontaneous
  Country: US (occurrence: US)
  Receive Date: 20250314
  Receipt Date: 20250314
  Transmission Date: 20250408
  Serious: No
  Sender: HETERO
  Company Number: US-HETERO-HET2025US01102

PATIENT
  Sex: Female
  Weight: 48.526 kg

DRUGS (3)
  1. PANTOPRAZOLE [Suspect]
     Active Substance: PANTOPRAZOLE
     Indication: Gastrooesophageal reflux disease
     Route: 048
     Dates: start: 20250228
  2. PANTOPRAZOLE [Suspect]
     Active Substance: PANTOPRAZOLE
     Indication: Gastritis
     Route: 065
     Dates: start: 20250304
  3. PANTOPRAZOLE [Suspect]
     Active Substance: PANTOPRAZOLE
     Route: 065
     Dates: start: 20250305

REACTIONS (3)
  - Abdominal pain upper [Unknown]
  - Abdominal distension [Unknown]
  - Diarrhoea [Unknown]
